FAERS Safety Report 6653185-0 (Version None)
Quarter: 2010Q1

REPORT INFORMATION
  Report Type: 
  Country: None (occurrence: None)
  Receive Date: 20100326
  Receipt Date: 20100316
  Transmission Date: 20100710
  Serious: Yes (Hospitalization, Other)
  Sender: FDA-Public Use
  Company Number: US-ABBOTT-10P-163-0630617-00

PATIENT
  Sex: Female
  Weight: 52.6 kg

DRUGS (19)
  1. DEPAKOTE [Suspect]
     Indication: DRUG USE FOR UNKNOWN INDICATION
     Dates: start: 20090917, end: 20091103
  2. CLOBAZAM [Suspect]
     Indication: LENNOX-GASTAUT SYNDROME
     Route: 048
     Dates: start: 20080312
  3. CLOBAZAM [Suspect]
     Route: 048
     Dates: start: 20091103
  4. CLONIDINE [Concomitant]
     Indication: DRUG USE FOR UNKNOWN INDICATION
  5. CORTEF [Concomitant]
     Indication: DRUG USE FOR UNKNOWN INDICATION
  6. HYDROCORTISON [Concomitant]
     Indication: DRUG USE FOR UNKNOWN INDICATION
  7. DIASTAT [Concomitant]
     Indication: DRUG USE FOR UNKNOWN INDICATION
  8. NITROFURANTOIN [Concomitant]
     Indication: DRUG USE FOR UNKNOWN INDICATION
  9. LEXAPRO [Concomitant]
     Indication: DRUG USE FOR UNKNOWN INDICATION
  10. LORATADINE [Concomitant]
     Indication: DRUG USE FOR UNKNOWN INDICATION
  11. MIRALAX [Concomitant]
     Indication: DRUG USE FOR UNKNOWN INDICATION
  12. PRILOSEC [Concomitant]
     Indication: DRUG USE FOR UNKNOWN INDICATION
  13. SODIUM CHLORIDE [Concomitant]
     Indication: DRUG USE FOR UNKNOWN INDICATION
  14. SYNTHROID [Concomitant]
     Indication: DRUG USE FOR UNKNOWN INDICATION
  15. MIRACLE BUTT PASTE [Concomitant]
     Indication: DRUG USE FOR UNKNOWN INDICATION
  16. LANSOPRAZOLE [Concomitant]
     Indication: DRUG USE FOR UNKNOWN INDICATION
  17. MULTI-VITAMINS [Concomitant]
     Indication: DRUG USE FOR UNKNOWN INDICATION
  18. PHENOBARBITAL TAB [Concomitant]
     Indication: DRUG USE FOR UNKNOWN INDICATION
  19. POLYETHYLENE GLYCOL [Concomitant]
     Indication: DRUG USE FOR UNKNOWN INDICATION

REACTIONS (10)
  - ABDOMINAL PAIN [None]
  - COLITIS [None]
  - DEHYDRATION [None]
  - DIARRHOEA [None]
  - DISSEMINATED INTRAVASCULAR COAGULATION [None]
  - PANCREATITIS [None]
  - PSEUDOCYST [None]
  - PYREXIA [None]
  - THROMBOCYTOPENIA [None]
  - VOMITING [None]
